FAERS Safety Report 16449957 (Version 1)
Quarter: 2019Q2

REPORT INFORMATION
  Report Type: Spontaneous
  Country: US (occurrence: US)
  Receive Date: 20190619
  Receipt Date: 20190619
  Transmission Date: 20190711
  Serious: No
  Sender: FDA-Public Use
  Company Number: US-GLENMARK PHARMACEUTICALS-2019GMK040970

PATIENT

DRUGS (1)
  1. OXCARBAZEPINE. [Suspect]
     Active Substance: OXCARBAZEPINE
     Indication: SEIZURE
     Dosage: 300 MG, BID
     Route: 048
     Dates: start: 20190415, end: 20190420

REACTIONS (9)
  - Ligament sprain [Unknown]
  - Oedema peripheral [Unknown]
  - Weight increased [Recovering/Resolving]
  - Arthralgia [Unknown]
  - Limb discomfort [Recovering/Resolving]
  - Discomfort [Recovering/Resolving]
  - Fall [Recovering/Resolving]
  - Cyst [Recovering/Resolving]
  - Cyst rupture [Unknown]

NARRATIVE: CASE EVENT DATE: 20190416
